FAERS Safety Report 15846714 (Version 2)
Quarter: 2019Q1

REPORT INFORMATION
  Report Type: Spontaneous
  Country: DE (occurrence: DE)
  Receive Date: 20190121
  Receipt Date: 20190204
  Transmission Date: 20190417
  Serious: Yes (Other)
  Sender: FDA-Public Use
  Company Number: DE-SUN PHARMACEUTICAL INDUSTRIES LTD-2018RR-196378

PATIENT
  Age: 68 Year
  Sex: Male

DRUGS (20)
  1. GABAPENTIN. [Suspect]
     Active Substance: GABAPENTIN
     Dosage: 600-300-300 MG (WEEK 17)
     Route: 065
  2. HYDROMORPHONE [Suspect]
     Active Substance: HYDROMORPHONE
     Indication: TRIGEMINAL NEURALGIA
     Dosage: 4 MG, 2X/DAY (4 - 0 - 4 MG)
     Route: 065
  3. AMITRIPTYLINE HYDROCHLORIDE. [Suspect]
     Active Substance: AMITRIPTYLINE HYDROCHLORIDE
     Dosage: 25 UNK
     Route: 065
  4. GABAPENTIN. [Suspect]
     Active Substance: GABAPENTIN
     Dosage: GABAPENTIN 300-300-300
     Route: 065
  5. GABAPENTIN. [Suspect]
     Active Substance: GABAPENTIN
     Indication: TRIGEMINAL NEURALGIA
     Dosage: 2400 MILLIGRAM, DAILY
     Route: 065
  6. OXCARBAZEPINE. [Suspect]
     Active Substance: OXCARBAZEPINE
     Indication: TRIGEMINAL NEURALGIA
     Dosage: 600 MG, UNK
     Route: 065
  7. TAPENTADOL HYDROCHLORIDE [Suspect]
     Active Substance: TAPENTADOL HYDROCHLORIDE
     Indication: TRIGEMINAL NEURALGIA
     Dosage: 500 MG/D
     Route: 065
  8. CAPSAICIN. [Suspect]
     Active Substance: CAPSAICIN
     Indication: PRODUCT USED FOR UNKNOWN INDICATION
     Dosage: 8%
     Route: 065
  9. ACYCLOVIR. [Suspect]
     Active Substance: ACYCLOVIR
     Indication: HERPES ZOSTER
     Dosage: UNK
     Route: 065
  10. AMITRIPTYLINE HYDROCHLORIDE. [Suspect]
     Active Substance: AMITRIPTYLINE HYDROCHLORIDE
     Dosage: AMITRIPTYLINE 10 DROPS (WEEK 8) ()
     Route: 065
  11. GABAPENTIN. [Suspect]
     Active Substance: GABAPENTIN
     Indication: TRIGEMINAL NEURALGIA
     Dosage: 1800 MG/D
     Route: 065
  12. GABAPENTIN. [Suspect]
     Active Substance: GABAPENTIN
     Dosage: 2400 MG/D
     Route: 065
  13. PREGABALIN. [Suspect]
     Active Substance: PREGABALIN
     Indication: POST HERPETIC NEURALGIA
     Dosage: UNK
     Route: 065
  14. TAPENTADOL HYDROCHLORIDE [Suspect]
     Active Substance: TAPENTADOL HYDROCHLORIDE
     Dosage: 100-100-200 MG (AFTER 8 MONTHS)
     Route: 065
  15. AMITRIPTYLINE HYDROCHLORIDE. [Suspect]
     Active Substance: AMITRIPTYLINE HYDROCHLORIDE
     Indication: TRIGEMINAL NEURALGIA
     Dosage: 20 MG, UNK
     Route: 065
  16. AMBROXOL [Suspect]
     Active Substance: AMBROXOL
     Indication: PRODUCT USED FOR UNKNOWN INDICATION
     Dosage: 20 % OINTMENT ()
     Route: 061
  17. OXCARBAZEPINE. [Suspect]
     Active Substance: OXCARBAZEPINE
     Dosage: 150 MG, 2X/DAY
     Route: 065
  18. LIDOCAINE HYDROCHLORIDE. [Suspect]
     Active Substance: LIDOCAINE HYDROCHLORIDE
     Indication: TRIGEMINAL NEURALGIA
     Dosage: UNK UNK, UNK ()
     Route: 061
  19. DEXAMETHASONE. [Suspect]
     Active Substance: DEXAMETHASONE
     Indication: POST HERPETIC NEURALGIA
     Route: 065
  20. DEXKETOPROFEN [Suspect]
     Active Substance: DEXKETOPROFEN
     Indication: POST HERPETIC NEURALGIA
     Dosage: FOR 60 MINUTES
     Route: 050

REACTIONS (25)
  - Hyperaesthesia [Unknown]
  - Drug ineffective [Unknown]
  - Confusional state [Unknown]
  - Hypoaesthesia [Unknown]
  - Osteoarthritis [Unknown]
  - Intentional product use issue [Unknown]
  - Benign prostatic hyperplasia [Unknown]
  - Erythema [Unknown]
  - Drug effect incomplete [Unknown]
  - Fall [Unknown]
  - Constipation [Unknown]
  - Blood creatinine increased [Unknown]
  - Insomnia [Unknown]
  - Depression [Unknown]
  - Burning sensation [Unknown]
  - Fatigue [Unknown]
  - Sleep apnoea syndrome [Unknown]
  - Sleep deficit [Recovered/Resolved]
  - Atrial fibrillation [Unknown]
  - Drug eruption [Unknown]
  - Quality of life decreased [Unknown]
  - Liver function test increased [Unknown]
  - Nasopharyngitis [Unknown]
  - Off label use [Unknown]
  - Glaucoma [Unknown]
